FAERS Safety Report 6321569-6 (Version None)
Quarter: 2009Q3

REPORT INFORMATION
  Report Type: 
  Country: None (occurrence: None)
  Receive Date: 20090820
  Receipt Date: 20090820
  Transmission Date: 20100115
  Serious: No
  Sender: FDA-Public Use
  Company Number: None

PATIENT
  Age: 61 Year
  Sex: Female
  Weight: 77.1115 kg

DRUGS (2)
  1. ZICAM NASAL SPRAY ZICAM [Suspect]
     Indication: NASOPHARYNGITIS
     Dates: start: 20081001, end: 20081115
  2. ZICAM NASAL SPRAY ZICAM [Suspect]
     Indication: NASOPHARYNGITIS
     Dates: start: 20081201, end: 20081231

REACTIONS (1)
  - ANOSMIA [None]
